FAERS Safety Report 9405150 (Version 3)
Quarter: 2014Q1

REPORT INFORMATION
  Report Type: Report from Study
  Country: US (occurrence: US)
  Receive Date: 20130717
  Receipt Date: 20140304
  Transmission Date: 20141002
  Serious: Yes (Hospitalization, Other)
  Sender: FDA-Public Use
  Company Number: US-PFIZER INC-2013206196

PATIENT
  Age: 67 Year
  Sex: Male
  Weight: 97.96 kg

DRUGS (6)
  1. MORPHINE SULFATE [Suspect]
     Dosage: UNK,  AS NEEDED
     Route: 048
  2. OXYCODONE HYDROCHLORIDE [Suspect]
     Dosage: 5 MG, 4X/DAY
     Route: 048
  3. OXYCONTIN [Suspect]
     Indication: SPINAL COLUMN STENOSIS
     Dosage: TWO,40 MG, BID
     Route: 048
  4. OXYCONTIN [Suspect]
     Indication: BACK PAIN
     Dosage: 80 MG, 2X/DAY
     Route: 048
     Dates: start: 20130814
  5. OXYCONTIN [Suspect]
     Indication: PAIN
  6. DEMEROL [Suspect]
     Dosage: UNK, AS NEEDED

REACTIONS (8)
  - Spinal disorder [Unknown]
  - Pain [Not Recovered/Not Resolved]
  - Disorientation [Unknown]
  - Limb discomfort [Not Recovered/Not Resolved]
  - Limb discomfort [Not Recovered/Not Resolved]
  - Spinal disorder [Not Recovered/Not Resolved]
  - Confusional state [Unknown]
  - Somnolence [Unknown]
